FAERS Safety Report 7567873-5 (Version None)
Quarter: 2011Q2

REPORT INFORMATION
  Report Type: 
  Country: None (occurrence: None)
  Receive Date: 20110623
  Receipt Date: 20110615
  Transmission Date: 20111010
  Serious: Yes (Other)
  Sender: FDA-Public Use
  Company Number: JP-ASTELLAS-2011JP004003

PATIENT
  Age: 54 Year
  Sex: Female

DRUGS (2)
  1. PROGRAF [Suspect]
     Dosage: UNK
     Route: 041
  2. MYCOPHENOLATE MEFETIL [Concomitant]
     Route: 065

REACTIONS (2)
  - DRUG INEFFECTIVE [None]
  - CHRONIC GRAFT VERSUS HOST DISEASE [None]
